FAERS Safety Report 21619782 (Version 2)
Quarter: 2023Q1

REPORT INFORMATION
  Report Type: Report from Study
  Country: US (occurrence: US)
  Receive Date: 20221121
  Receipt Date: 20230102
  Transmission Date: 20230417
  Serious: Yes (Other)
  Sender: FDA-Public Use
  Company Number: US-UCBSA-2022065670

PATIENT
  Sex: Female

DRUGS (2)
  1. CERTOLIZUMAB PEGOL [Suspect]
     Active Substance: CERTOLIZUMAB PEGOL
     Indication: Ankylosing spondylitis
     Dosage: 400 MILLIGRAM, EV 4 WEEKS
     Route: 058
     Dates: start: 20220810
  2. CERTOLIZUMAB PEGOL [Suspect]
     Active Substance: CERTOLIZUMAB PEGOL
     Dosage: 400 MILLIGRAM, MONTHLY (QM)
     Route: 058
     Dates: start: 2022, end: 202211

REACTIONS (4)
  - Ankylosing spondylitis [Recovering/Resolving]
  - Cellulitis [Recovering/Resolving]
  - Stress [Recovering/Resolving]
  - Drug ineffective [Unknown]

NARRATIVE: CASE EVENT DATE: 20220101
